FAERS Safety Report 24854293 (Version 3)
Quarter: 2025Q1

REPORT INFORMATION
  Report Type: Spontaneous
  Country: IL (occurrence: IL)
  Receive Date: 20250117
  Receipt Date: 20250124
  Transmission Date: 20250408
  Serious: Yes (Death, Hospitalization, Other)
  Sender: ABBVIE
  Company Number: IL-ABBVIE-6090642

PATIENT
  Age: 79 Year
  Sex: Male

DRUGS (6)
  1. RINVOQ [Suspect]
     Active Substance: UPADACITINIB
     Indication: Colitis ulcerative
     Route: 048
     Dates: start: 202311
  2. BROTIZOLAM [Concomitant]
     Active Substance: BROTIZOLAM
     Indication: Product used for unknown indication
  3. FOLIC ACID [Concomitant]
     Active Substance: FOLIC ACID
     Indication: Product used for unknown indication
  4. ASPIRIN [Concomitant]
     Active Substance: ASPIRIN
     Indication: Product used for unknown indication
  5. TAMSULOSIN HYDROCHLORIDE [Concomitant]
     Active Substance: TAMSULOSIN HYDROCHLORIDE
     Indication: Product used for unknown indication
  6. SIMVASTATIN [Concomitant]
     Active Substance: SIMVASTATIN
     Indication: Product used for unknown indication

REACTIONS (6)
  - Upper gastrointestinal haemorrhage [Fatal]
  - Arterial haemorrhage [Fatal]
  - Haemoglobin decreased [Unknown]
  - Shock haemorrhagic [Fatal]
  - Stoma site discharge [Unknown]
  - Ulcer [Unknown]

NARRATIVE: CASE EVENT DATE: 20231101
